FAERS Safety Report 5932902-9 (Version None)
Quarter: 2008Q4

REPORT INFORMATION
  Report Type: 
  Country: None (occurrence: None)
  Receive Date: 20081027
  Receipt Date: 20081027
  Transmission Date: 20090506
  Serious: No
  Sender: FDA-Public Use
  Company Number: None

PATIENT
  Sex: Female
  Weight: 68.0396 kg

DRUGS (1)
  1. ACCUTANE [Suspect]
     Indication: ACNE CYSTIC
     Dosage: ONE TABLET ONE TIME/DAY PO
     Route: 048
     Dates: start: 19850709, end: 19851009

REACTIONS (1)
  - BLOOD TRIGLYCERIDES INCREASED [None]
